FAERS Safety Report 14222408 (Version 2)
Quarter: 2017Q4

REPORT INFORMATION
  Report Type: Spontaneous
  Country: JP (occurrence: JP)
  Receive Date: 20171124
  Receipt Date: 20171226
  Transmission Date: 20180321
  Serious: Yes (Hospitalization, Disabling)
  Sender: FDA-Public Use
  Company Number: JP-009507513-1711JPN001866J

PATIENT
  Age: 65 Year
  Sex: Female
  Weight: 48 kg

DRUGS (8)
  1. KEYTRUDA [Suspect]
     Active Substance: PEMBROLIZUMAB
     Dosage: 100 MG, Q3W
     Route: 041
     Dates: start: 20171121
  2. YERVOY [Concomitant]
     Active Substance: IPILIMUMAB
     Dosage: UNK
     Route: 051
     Dates: start: 20170929, end: 20171020
  3. THYRADIN S [Concomitant]
     Active Substance: LEVOTHYROXINE SODIUM
     Dosage: UNK
     Route: 048
  4. KEYTRUDA [Suspect]
     Active Substance: PEMBROLIZUMAB
     Indication: ACRAL LENTIGINOUS MELANOMA STAGE II
     Dosage: 92 MG, Q3W
     Route: 041
     Dates: start: 20170428, end: 20170908
  5. E KEPPRA [Concomitant]
     Active Substance: LEVETIRACETAM
     Dosage: UNK
     Route: 048
  6. MAGMITT [Concomitant]
     Active Substance: MAGNESIUM OXIDE
     Dosage: UNK
     Route: 048
  7. EDIROL [Concomitant]
     Active Substance: ELDECALCITOL
     Dosage: UNK
     Route: 048
  8. CALCIUM LACTATE HYDRATE [Concomitant]
     Active Substance: CALCIUM LACTATE
     Dosage: UNK
     Route: 048

REACTIONS (1)
  - Type 1 diabetes mellitus [Not Recovered/Not Resolved]

NARRATIVE: CASE EVENT DATE: 20171114
